FAERS Safety Report 12178306 (Version 1)
Quarter: 2016Q1

REPORT INFORMATION
  Report Type: Spontaneous
  Country: US (occurrence: US)
  Receive Date: 20160315
  Receipt Date: 20160315
  Transmission Date: 20160526
  Serious: No
  Sender: FDA-Public Use
  Company Number: US-JNJFOC-20160221020

PATIENT
  Age: 83 Year
  Sex: Male
  Weight: 92.99 kg

DRUGS (1)
  1. ZYTIGA [Suspect]
     Active Substance: ABIRATERONE ACETATE
     Indication: PROSTATE CANCER
     Route: 048
     Dates: start: 20151011, end: 20160219

REACTIONS (3)
  - Prostatic specific antigen increased [Unknown]
  - Adverse event [Unknown]
  - Hypertension [Unknown]

NARRATIVE: CASE EVENT DATE: 20160219
